FAERS Safety Report 5867224-8 (Version None)
Quarter: 2008Q3

REPORT INFORMATION
  Report Type: 
  Country: None (occurrence: None)
  Receive Date: 20080829
  Receipt Date: 20080829
  Transmission Date: 20090109
  Serious: Yes (Other)
  Sender: FDA-Public Use
  Company Number: None

PATIENT
  Age: 60 Year
  Sex: Female
  Weight: 54.4316 kg

DRUGS (1)
  1. ARMOUR THYROID 15 MGS FOREST LABS/PHARMACEUTICAL [Suspect]
     Indication: HYPOTHYROIDISM
     Dosage: 15MGS X 3 = 45 MGS MORNING PO
     Route: 048
     Dates: start: 20080819, end: 20080828

REACTIONS (5)
  - DIZZINESS [None]
  - GASTRITIS [None]
  - MALAISE [None]
  - OESOPHAGITIS [None]
  - PHARMACEUTICAL PRODUCT COMPLAINT [None]
